FAERS Safety Report 19651480 (Version 1)
Quarter: 2021Q3

REPORT INFORMATION
  Report Type: Report from Study
  Country: CA (occurrence: CA)
  Receive Date: 20210803
  Receipt Date: 20210803
  Transmission Date: 20211014
  Serious: Yes (Other)
  Sender: FDA-Public Use
  Company Number: CA-ACCORD-234105

PATIENT
  Sex: Male

DRUGS (5)
  1. MYCOPHENOLIC ACID. [Suspect]
     Active Substance: MYCOPHENOLIC ACID
     Indication: IMMUNE THROMBOCYTOPENIA
     Dosage: 2 EVERY 1 DAYS
     Route: 048
  2. TRANEXAMIC ACID. [Concomitant]
     Active Substance: TRANEXAMIC ACID
     Dosage: 3 EVERY 1 DAYS
  3. MENINGOCOCCAL VACCINE POLYSACCHARIDE (NOS) [Concomitant]
     Active Substance: MENINGOCOCCAL POLYSACCHARIDE VACCINE, GROUPS A, C, Y,W135 COMBINED
     Route: 030
  4. ELTROMBOPAG OLAMINE [Suspect]
     Active Substance: ELTROMBOPAG OLAMINE
     Indication: PRODUCT USED FOR UNKNOWN INDICATION
  5. PREDNISONE. [Concomitant]
     Active Substance: PREDNISONE
     Dosage: 3 EVERY 1 DAYS

REACTIONS (6)
  - Platelet count decreased [Unknown]
  - Haemorrhage [Unknown]
  - Reticulocyte count increased [Unknown]
  - Blood glucose increased [Unknown]
  - Gingival bleeding [Unknown]
  - Off label use [Unknown]
